FAERS Safety Report 7503766-7 (Version None)
Quarter: 2011Q2

REPORT INFORMATION
  Report Type: 
  Country: None (occurrence: None)
  Receive Date: 20110525
  Receipt Date: 20110209
  Transmission Date: 20111010
  Serious: Yes (Other)
  Sender: FDA-Public Use
  Company Number: US-BAYER-2011-015275

PATIENT
  Sex: Male

DRUGS (7)
  1. GADOLINIUM IN UNSPECIFIED DRUG [Suspect]
     Indication: NUCLEAR MAGNETIC RESONANCE IMAGING
     Dosage: UNK
     Dates: start: 20060617, end: 20060617
  2. PLAVIX [Concomitant]
  3. GADOLINIUM IN UNSPECIFIED DRUG [Suspect]
     Indication: COMPUTERISED TOMOGRAM HEAD
     Dosage: UNK
     Dates: start: 20060613, end: 20060613
  4. GADOLINIUM IN UNSPECIFIED DRUG [Suspect]
     Dosage: UNK
     Dates: start: 20060618, end: 20060618
  5. GADOLINIUM IN UNSPECIFIED DRUG [Suspect]
     Indication: NUCLEAR MAGNETIC RESONANCE IMAGING BRAIN
     Dosage: UNK
     Dates: start: 20060616, end: 20060616
  6. CLARITIN [Concomitant]
  7. VITAMINS [Concomitant]

REACTIONS (11)
  - OEDEMA [None]
  - MOBILITY DECREASED [None]
  - SCAR [None]
  - JOINT STIFFNESS [None]
  - VEIN DISCOLOURATION [None]
  - SKIN HYPERTROPHY [None]
  - RASH [None]
  - SKIN FIBROSIS [None]
  - SKIN TIGHTNESS [None]
  - NEPHROGENIC SYSTEMIC FIBROSIS [None]
  - ARTHRALGIA [None]
